FAERS Safety Report 5030347-X (Version None)
Quarter: 2006Q2

REPORT INFORMATION
  Report Type: 
  Country: None (occurrence: None)
  Receive Date: 20060614
  Receipt Date: 20060525
  Transmission Date: 20061013
  Serious: Yes (Other)
  Sender: FDA-Public Use
  Company Number: US200605001443

PATIENT
  Age: 41 Year
  Sex: Female
  Weight: 51.2 kg

DRUGS (8)
  1. CYMBALTA [Suspect]
     Indication: DEPRESSION
     Dosage: 60 MG
     Dates: start: 20060111, end: 20060428
  2. PROVIGIL [Concomitant]
  3. ESZOPICLONE (ESZOPICLONE) [Concomitant]
  4. VALTREX   /UNK/(VALACICLOVIR HYDROCHLORIDE) [Concomitant]
  5. DETROL -SLOW RELEASE (TOLTERODINE L-TARTRATE) [Concomitant]
  6. TYLOX (OXYCODONE HYDROCHLORIDE, PARACETAMOL) [Concomitant]
  7. KLONOPIN [Concomitant]
  8. ACIPHEX [Concomitant]

REACTIONS (3)
  - ALANINE AMINOTRANSFERASE INCREASED [None]
  - ASPARTATE AMINOTRANSFERASE INCREASED [None]
  - BLOOD ALKALINE PHOSPHATASE INCREASED [None]
